FAERS Safety Report 6676355-4 (Version None)
Quarter: 2010Q2

REPORT INFORMATION
  Report Type: 
  Country: None (occurrence: None)
  Receive Date: 20100408
  Receipt Date: 20100401
  Transmission Date: 20101027
  Serious: Yes (Death)
  Sender: FDA-Public Use
  Company Number: 1000012705

PATIENT
  Age: 52 Year
  Sex: Male

DRUGS (3)
  1. LEXAPRO [Suspect]
     Indication: DEPRESSION
     Dosage: 20 MG (20 MG, 1 IN 1 D), ORAL
     Route: 048
     Dates: start: 20081201, end: 20090630
  2. VISTARIL [Suspect]
     Indication: ANXIETY
     Dosage: 100 MG (50 MG, 2 IN 1 D), ORAL
     Route: 048
     Dates: end: 20090630
  3. METHADONE HCL [Concomitant]

REACTIONS (1)
  - DRUG TOXICITY [None]
